FAERS Safety Report 17299961 (Version 1)
Quarter: 2020Q1

REPORT INFORMATION
  Report Type: Spontaneous
  Country: US (occurrence: US)
  Receive Date: 20200122
  Receipt Date: 20200122
  Transmission Date: 20200409
  Serious: No
  Sender: FDA-Public Use
  Company Number: US-ALLERGAN-1927051US

PATIENT
  Age: 11 Year
  Sex: Female

DRUGS (1)
  1. RESTASIS [Suspect]
     Active Substance: CYCLOSPORINE
     Indication: EYE SWELLING
     Dosage: UNK UNK, Q12H
     Route: 047
     Dates: start: 20190627, end: 20190628

REACTIONS (4)
  - Eye pruritus [Unknown]
  - Off label use [Unknown]
  - Ocular hyperaemia [Unknown]
  - Eye swelling [Unknown]

NARRATIVE: CASE EVENT DATE: 201906
